FAERS Safety Report 10462931 (Version 2)
Quarter: 2014Q3

REPORT INFORMATION
  Report Type: Report from Study
  Country: US (occurrence: US)
  Receive Date: 20140918
  Receipt Date: 20140918
  Transmission Date: 20150326
  Serious: Yes (Other)
  Sender: FDA-Public Use
  Company Number: US-ALEXION PHARMACEUTICALS INC-A200700293

PATIENT
  Age: 43 Year
  Sex: Female

DRUGS (16)
  1. SOLIRIS [Suspect]
     Active Substance: ECULIZUMAB
     Indication: PAROXYSMAL NOCTURNAL HAEMOGLOBINURIA
     Dosage: UNK
     Route: 042
     Dates: start: 2007, end: 2007
  2. PROCRIT [Concomitant]
     Active Substance: ERYTHROPOIETIN
     Indication: PAROXYSMAL NOCTURNAL HAEMOGLOBINURIA
     Dosage: UNK
  3. SOLIRIS [Suspect]
     Active Substance: ECULIZUMAB
     Dosage: UNK
     Route: 042
     Dates: start: 20080519
  4. SOLIRIS [Suspect]
     Active Substance: ECULIZUMAB
     Dosage: UNK, SINGLE
     Route: 042
     Dates: start: 200807, end: 200807
  5. BENADRYL [Concomitant]
     Active Substance: DIPHENHYDRAMINE HYDROCHLORIDE
     Indication: PREMEDICATION
     Dosage: UNK
  6. SOLIRIS [Suspect]
     Active Substance: ECULIZUMAB
     Dosage: UNK, SINGLE
     Route: 042
     Dates: start: 20071205, end: 20071205
  7. SOLIRIS [Suspect]
     Active Substance: ECULIZUMAB
     Dosage: UNK, BI-WEEKLY
     Route: 042
  8. SOLIRIS [Suspect]
     Active Substance: ECULIZUMAB
     Dosage: UNK, MAINTENENCE PHASE
     Route: 042
  9. CYCLOSPORINE. [Concomitant]
     Active Substance: CYCLOSPORINE
     Indication: PRODUCT USED FOR UNKNOWN INDICATION
     Dosage: UNK
  10. BENADRYL [Concomitant]
     Active Substance: DIPHENHYDRAMINE HYDROCHLORIDE
     Indication: PROPHYLAXIS
  11. DESFERAL [Concomitant]
     Active Substance: DEFEROXAMINE MESYLATE
     Indication: IRON OVERLOAD
     Dosage: UNK, ONCE DAILY
  12. SOLIRIS [Suspect]
     Active Substance: ECULIZUMAB
     Dosage: UNK, Q 12 DAYS
     Route: 042
  13. SOLIRIS [Suspect]
     Active Substance: ECULIZUMAB
     Dosage: UNK, SINGLE
     Dates: start: 20080702, end: 20080702
  14. SOLIRIS [Suspect]
     Active Substance: ECULIZUMAB
     Dosage: UNK, SINGLE
     Route: 042
     Dates: start: 200807, end: 200807
  15. EXJADE [Suspect]
     Active Substance: DEFERASIROX
     Indication: IRON OVERLOAD
     Dosage: UNK
     Dates: start: 2008, end: 2008
  16. PROCRIT [Concomitant]
     Active Substance: ERYTHROPOIETIN
     Indication: OFF LABEL USE

REACTIONS (44)
  - Renal disorder [Unknown]
  - Back pain [Recovering/Resolving]
  - Blood lactate dehydrogenase increased [Unknown]
  - Chest pain [Unknown]
  - Anxiety [Unknown]
  - Infusion related reaction [Recovered/Resolved]
  - Nasopharyngitis [Recovered/Resolved]
  - Headache [Recovered/Resolved]
  - Diarrhoea [Unknown]
  - Anaemia [Not Recovered/Not Resolved]
  - Dystonia [Recovered/Resolved]
  - Stress at work [Unknown]
  - Musculoskeletal pain [Recovering/Resolving]
  - Chromaturia [Unknown]
  - Hypersensitivity [Unknown]
  - Dyspnoea [Recovering/Resolving]
  - Dysphagia [Not Recovered/Not Resolved]
  - Extravascular haemolysis [Unknown]
  - Ear congestion [Unknown]
  - Tremor [Unknown]
  - Glomerular filtration rate increased [Unknown]
  - Pyrexia [Unknown]
  - Iron overload [Not Recovered/Not Resolved]
  - Upper-airway cough syndrome [Unknown]
  - Haemoglobinuria [Unknown]
  - Blood creatinine increased [Unknown]
  - Muscle spasms [Unknown]
  - Cough [Unknown]
  - Haemolysis [Unknown]
  - Quality of life decreased [Unknown]
  - Nasopharyngitis [Recovered/Resolved]
  - Fatigue [Unknown]
  - Haemoglobin decreased [Not Recovered/Not Resolved]
  - Drug ineffective [Unknown]
  - Transfusion [Not Recovered/Not Resolved]
  - Oesophageal spasm [Recovered/Resolved]
  - Migraine [Unknown]
  - Reticulocyte count increased [Unknown]
  - Dyspepsia [Unknown]
  - Abdominal pain [Not Recovered/Not Resolved]
  - Discomfort [Unknown]
  - Blood iron increased [Not Recovered/Not Resolved]
  - Serum ferritin increased [Unknown]
  - Neck pain [Recovering/Resolving]

NARRATIVE: CASE EVENT DATE: 200711
